FAERS Safety Report 18277464 (Version 1)
Quarter: 2020Q3

REPORT INFORMATION
  Report Type: Spontaneous
  Country: DE (occurrence: DE)
  Receive Date: 20200917
  Receipt Date: 20200917
  Transmission Date: 20201103
  Serious: Yes (Hospitalization)
  Sender: FDA-Public Use
  Company Number: DE-ACCORD-201453

PATIENT
  Age: 87 Year
  Sex: Male
  Weight: 75 kg

DRUGS (11)
  1. COLECALCIFEROL [Concomitant]
     Active Substance: CHOLECALCIFEROL
     Dosage: 20.000 IE, DONNERSTAG
     Route: 048
  2. FENISTIL [Concomitant]
     Active Substance: DIMETHINDENE
     Dosage: 1 MG, 0?0?1?0, COATED TABLETS
     Route: 048
  3. APIXABAN [Concomitant]
     Active Substance: APIXABAN
     Dosage: 5 MG, 1?0?1?0
     Route: 048
  4. SILAPO [Concomitant]
     Dosage: 2000 IE, 0?0?1?0,2000 IU / 0.6 ML
     Route: 058
  5. TORASEMIDE [Concomitant]
     Active Substance: TORSEMIDE
     Dosage: 100 MG, 2?0?0?0
     Route: 048
  6. CANDESARTAN. [Concomitant]
     Active Substance: CANDESARTAN
     Dosage: 8 MG, 1?0?0?0
     Route: 048
  7. BISOPROLOL [Suspect]
     Active Substance: BISOPROLOL
     Indication: PRODUCT USED FOR UNKNOWN INDICATION
     Dosage: 10 MG, 1?0?1?0
     Route: 048
  8. HYDROCORTISONE. [Concomitant]
     Active Substance: HYDROCORTISONE
     Dosage: 5 MG, 1?0?1?0,  OINTMENT
     Route: 061
  9. SPIRONOLACTONE. [Suspect]
     Active Substance: SPIRONOLACTONE
     Indication: PRODUCT USED FOR UNKNOWN INDICATION
     Dosage: 50 MG, 0?0?1?0
     Route: 048
  10. NALOXONE HYDROCHLORIDE/TILIDINE HYDROCHLORIDE [Suspect]
     Active Substance: NALOXONE HYDROCHLORIDE\TILIDINE HYDROCHLORIDE
     Indication: PRODUCT USED FOR UNKNOWN INDICATION
     Dosage: 4 50 MG, 1?0?1?0
     Route: 048
  11. FOLIC ACID. [Concomitant]
     Active Substance: FOLIC ACID
     Dosage: 5 MG, 1?0?0?0
     Route: 048

REACTIONS (6)
  - Musculoskeletal pain [Unknown]
  - Delirium [Unknown]
  - Wound [Unknown]
  - Oedema peripheral [Unknown]
  - Fracture [Unknown]
  - Fall [Unknown]

NARRATIVE: CASE EVENT DATE: 201912
